FAERS Safety Report 25895761 (Version 1)
Quarter: 2025Q4

REPORT INFORMATION
  Report Type: Spontaneous
  Country: US (occurrence: US)
  Receive Date: 20251008
  Receipt Date: 20251008
  Transmission Date: 20260117
  Serious: Yes (Hospitalization)
  Sender: NOVARTIS
  Company Number: US-002147023-NVSC2025US151130

PATIENT
  Sex: Female
  Weight: 156 kg

DRUGS (2)
  1. MEKINIST [Suspect]
     Active Substance: TRAMETINIB DIMETHYL SULFOXIDE
     Indication: Product used for unknown indication
     Dosage: 2 MG
     Route: 065
     Dates: start: 20250831
  2. TAFINLAR [Suspect]
     Active Substance: DABRAFENIB MESYLATE
     Indication: Product used for unknown indication
     Dosage: UNK
     Route: 065
     Dates: start: 20250831

REACTIONS (10)
  - Pyrexia [Unknown]
  - Headache [Unknown]
  - Palpitations [Unknown]
  - Infection [Unknown]
  - Visual impairment [Unknown]
  - Hypoacusis [Unknown]
  - Cough [Unknown]
  - Oral pain [Unknown]
  - Arthralgia [Unknown]
  - Mental disorder [Unknown]
